FAERS Safety Report 8579087-0 (Version None)
Quarter: 2012Q3

REPORT INFORMATION
  Report Type: 
  Country: None (occurrence: None)
  Receive Date: 20120808
  Receipt Date: 20120803
  Transmission Date: 20120928
  Serious: Yes (Hospitalization)
  Sender: FDA-Public Use
  Company Number: FR-ROCHE-1084865

PATIENT
  Sex: Female
  Weight: 57 kg

DRUGS (16)
  1. LOVENOX [Concomitant]
     Dates: start: 20120701
  2. BICARBONATE [Concomitant]
     Dates: start: 20120416
  3. ACETAMINOPHEN [Concomitant]
     Dates: start: 20120401
  4. PRIMPERAN ELIXIR [Concomitant]
     Dates: start: 20120701
  5. HERCEPTIN [Suspect]
     Indication: BREAST CANCER
     Dosage: LAST DOSE PRIOR TO SAE 18/JUN/2012
     Route: 042
     Dates: start: 20120416, end: 20120618
  6. DOCETAXEL [Suspect]
     Indication: BREAST CANCER
     Dosage: LAST DOSE PRIOR TO SAE 18/JUN/2012
     Route: 042
     Dates: start: 20120416, end: 20120618
  7. MEDROL [Concomitant]
     Dates: start: 20120416
  8. FLUCONAZOLE [Concomitant]
     Dates: start: 20120416
  9. TRAMADOL HCL [Concomitant]
     Dates: start: 20120701
  10. ACETAMINOPHEN [Concomitant]
     Dates: start: 20120416
  11. HERCEPTIN [Suspect]
     Dates: start: 20120724
  12. DOCETAXEL [Suspect]
     Dates: start: 20120724
  13. XANAX [Concomitant]
     Dates: start: 20120601
  14. SPASFON [Concomitant]
     Dates: start: 20120701
  15. ATARAX [Concomitant]
     Dates: start: 20120701
  16. ALODONT [Concomitant]
     Dates: start: 20120416

REACTIONS (3)
  - FEBRILE BONE MARROW APLASIA [None]
  - VERTIGO [None]
  - SEPSIS SYNDROME [None]
